FAERS Safety Report 8816868 (Version 1)
Quarter: 2012Q4

REPORT INFORMATION
  Report Type: Spontaneous
  Country: US (occurrence: None)
  Receive Date: 20121002
  Receipt Date: 20121002
  Transmission Date: 20130627
  Serious: Yes (Death)
  Sender: FDA-Public Use
  Company Number: None

PATIENT
  Sex: Male

DRUGS (2)
  1. XELODA [Suspect]
     Dosage: 5 tablets BID ORAL
     Route: 048
  2. XELODA [Suspect]
     Dosage: 1 tablet BID Oral
     Route: 048

REACTIONS (6)
  - Palmar-plantar erythrodysaesthesia syndrome [None]
  - Abdominal pain upper [None]
  - Pain in extremity [None]
  - Transient ischaemic attack [None]
  - Pulmonary thrombosis [None]
  - Cerebral haemorrhage [None]
